FAERS Safety Report 8852019 (Version 5)
Quarter: 2013Q1

REPORT INFORMATION
  Report Type: Spontaneous
  Country: JP (occurrence: JP)
  Receive Date: 20121022
  Receipt Date: 20130103
  Transmission Date: 20140127
  Serious: Yes (Death, Life-Threatening, Hospitalization, Other)
  Sender: FDA-Public Use
  Company Number: JP-ASTELLAS-2012US010325

PATIENT
  Age: 63 Year
  Sex: Male
  Weight: 62 kg

DRUGS (10)
  1. TARCEVA [Suspect]
     Indication: LUNG ADENOCARCINOMA
     Dosage: 150 MG, UID/QD
     Route: 048
     Dates: start: 20120821, end: 20121003
  2. HARNAL [Concomitant]
     Indication: PRODUCT USED FOR UNKNOWN INDICATION
     Dosage: 0.2 MG, UID/QD
     Route: 048
     Dates: start: 200911, end: 2012
  3. BAYASPIRIN [Concomitant]
     Indication: AORTIC VALVE STENOSIS
     Dosage: 100 MG, UID/QD
     Route: 048
     Dates: start: 20120912, end: 2012
  4. REZALTAS [Concomitant]
     Indication: AORTIC VALVE STENOSIS
     Dosage: 1 DF, UID/QD
     Route: 048
     Dates: start: 20120912, end: 2012
  5. MINOMYCIN [Concomitant]
     Indication: PRODUCT USED FOR UNKNOWN INDICATION
     Dosage: 50 MG, UID/QD
     Route: 048
  6. ALESION [Concomitant]
     Indication: PRODUCT USED FOR UNKNOWN INDICATION
     Dosage: 20 MG, UID/QD
     Route: 048
  7. PREDONINE                          /00016201/ [Concomitant]
     Indication: PRODUCT USED FOR UNKNOWN INDICATION
     Dosage: 5 MG, UID/QD
     Route: 048
  8. SOLU-MEDROL [Concomitant]
     Indication: PRODUCT USED FOR UNKNOWN INDICATION
     Dosage: 500 MG, UID/QD
     Route: 042
  9. ELASPOL [Concomitant]
     Indication: PRODUCT USED FOR UNKNOWN INDICATION
     Dosage: 100 MG, UID/QD
     Route: 042
  10. ZITHROMAX [Concomitant]
     Indication: PRODUCT USED FOR UNKNOWN INDICATION
     Dosage: 500 MG, UID/QD
     Route: 041

REACTIONS (7)
  - Cardiac arrest [Fatal]
  - Aortic valve stenosis [Fatal]
  - Aortic valve incompetence [Fatal]
  - Interstitial lung disease [Fatal]
  - Malignant neoplasm progression [Fatal]
  - Treatment noncompliance [Unknown]
  - Rash [Recovered/Resolved]
